FAERS Safety Report 7450001-4 (Version None)
Quarter: 2011Q2

REPORT INFORMATION
  Report Type: 
  Country: None (occurrence: None)
  Receive Date: 20110502
  Receipt Date: 20110420
  Transmission Date: 20111010
  Serious: Yes (Other)
  Sender: FDA-Public Use
  Company Number: TR-ELI_LILLY_AND_COMPANY-TR201104006094

PATIENT
  Age: 66 Year
  Sex: Female

DRUGS (1)
  1. FORTEO [Suspect]
     Indication: OSTEOPOROSIS
     Dosage: UNK
     Route: 058
     Dates: start: 20110401

REACTIONS (6)
  - ABASIA [None]
  - ASTHENIA [None]
  - BONE PAIN [None]
  - SOMNOLENCE [None]
  - FATIGUE [None]
  - MYALGIA [None]
